FAERS Safety Report 9121297 (Version 2)
Quarter: 2013Q2

REPORT INFORMATION
  Report Type: Spontaneous
  Country: SE (occurrence: SE)
  Receive Date: 20130225
  Receipt Date: 20130411
  Transmission Date: 20140414
  Serious: Yes (Death, Hospitalization)
  Sender: FDA-Public Use
  Company Number: SE-ASTRAZENECA-2013SE12155

PATIENT
  Age: 24208 Day
  Sex: Male

DRUGS (29)
  1. BRILIQUE [Suspect]
     Indication: ACUTE MYOCARDIAL INFARCTION
     Route: 048
     Dates: start: 20120128, end: 20120202
  2. BRILIQUE [Suspect]
     Indication: HYPERTENSION
     Route: 048
     Dates: start: 20120128, end: 20120202
  3. PERFALGAN [Concomitant]
     Dosage: 10 MG/ML
  4. FRAGMIN [Concomitant]
     Dosage: 25000 IE/ML
  5. CORDARONE [Concomitant]
     Dosage: 50 MG/ML
  6. SIMVASTATIN [Concomitant]
  7. NORADRENALIN [Concomitant]
  8. PROPOFOL (PFIZER) [Concomitant]
     Dosage: 20 MG/ML
  9. DEXDOR [Concomitant]
     Dosage: 100 MIKROGRAM/ML
  10. TAZOCIN [Concomitant]
     Dosage: 4 G/0.5 G
  11. ADDEX [Concomitant]
     Dosage: 2 MMOL/ML
  12. PRIMPERAN [Concomitant]
     Dosage: 5 MG/ML
  13. DIGOXIN (BIOPHAUSIA) [Concomitant]
     Dosage: 0.25 MG/ML
  14. SELOKEN [Concomitant]
     Route: 048
  15. ALVEDON [Concomitant]
  16. FURIX [Concomitant]
     Dosage: 10 MG/ML
  17. FURIX [Concomitant]
  18. ATENATIV [Concomitant]
     Dosage: 50 IE/ML
  19. NITROGLYCERIN [Concomitant]
  20. ANDAPSIN [Concomitant]
     Dosage: 200 MG/ML
     Route: 048
  21. COROTROP [Concomitant]
     Dosage: 10 MG/ML
  22. TROMBYL [Concomitant]
  23. TROMBYL [Concomitant]
  24. KETOGAN NOVUM [Concomitant]
     Dosage: 5 MG/ML
  25. MOVICOL [Concomitant]
  26. ULTIVA [Concomitant]
  27. PANTOLOC [Concomitant]
  28. NOVORAPID [Concomitant]
     Dosage: 100 E/ML
  29. SIMDAX [Concomitant]
     Dosage: 2.5 MG/ML

REACTIONS (1)
  - Pulmonary haemorrhage [Fatal]
